FAERS Safety Report 6764731-0 (Version None)
Quarter: 2010Q2

REPORT INFORMATION
  Report Type: 
  Country: None (occurrence: None)
  Receive Date: 20100610
  Receipt Date: 20100601
  Transmission Date: 20101027
  Serious: Yes (Other)
  Sender: FDA-Public Use
  Company Number: US-PFIZER INC-2010026214

PATIENT
  Sex: Male
  Weight: 163 kg

DRUGS (1)
  1. SUTENT [Suspect]
     Indication: METASTATIC RENAL CELL CARCINOMA
     Dosage: 50 MG, 1X/DAY, 2 WEEKS ON/ 1 WEEK OFF
     Route: 048
     Dates: start: 20100206

REACTIONS (8)
  - BLOOD GLUCOSE INCREASED [None]
  - DYSPNOEA [None]
  - EPISTAXIS [None]
  - FATIGUE [None]
  - GOUT [None]
  - HAEMOGLOBIN DECREASED [None]
  - RIB FRACTURE [None]
  - TONGUE BLISTERING [None]
